FAERS Safety Report 22273137 (Version 3)
Quarter: 2024Q3

REPORT INFORMATION
  Report Type: Spontaneous
  Country: AU (occurrence: None)
  Receive Date: 20230502
  Receipt Date: 20240819
  Transmission Date: 20241017
  Serious: Yes (Hospitalization, Other)
  Sender: ASTRAZENECA
  Company Number: 2023A099394

PATIENT
  Age: 52 Year
  Sex: Female

DRUGS (14)
  1. ESOMEPRAZOLE [Suspect]
     Active Substance: ESOMEPRAZOLE
     Indication: Product used for unknown indication
  2. ROSUVASTATIN [Suspect]
     Active Substance: ROSUVASTATIN\ROSUVASTATIN CALCIUM
     Indication: Product used for unknown indication
     Dosage: 10.0MG UNKNOWN
  3. ANASTROZOLE [Suspect]
     Active Substance: ANASTROZOLE
     Indication: Breast cancer female
  4. NOVORAPID [Suspect]
     Active Substance: INSULIN ASPART
     Indication: Product used for unknown indication
  5. INSULIN GLARGINE [Suspect]
     Active Substance: INSULIN GLARGINE
     Indication: Product used for unknown indication
  6. PHENERGAN [Suspect]
     Active Substance: PROMETHAZINE HYDROCHLORIDE
     Indication: Local reaction
  7. ALBUTEROL [Suspect]
     Active Substance: ALBUTEROL
  8. APIXABAN [Suspect]
     Active Substance: APIXABAN
     Indication: Product used for unknown indication
  9. FAMOTIDINE [Suspect]
     Active Substance: FAMOTIDINE
     Indication: Mast cell activation syndrome
  10. LORATADINE [Suspect]
     Active Substance: LORATADINE
     Indication: Mast cell activation syndrome
  11. LORATADINE [Suspect]
     Active Substance: LORATADINE
     Indication: Mast cell activation syndrome
  12. METFORMIN HYDROCHLORIDE [Suspect]
     Active Substance: METFORMIN HYDROCHLORIDE
     Indication: Diabetes mellitus
  13. MONTELUKAST [Suspect]
     Active Substance: MONTELUKAST SODIUM
     Indication: Mast cell activation syndrome
  14. COMIRNATY (TOZINAMERAN) [Suspect]
     Active Substance: TOZINAMERAN
     Indication: COVID-19 immunisation
     Dosage: INTERVAL: 1 TOTAL
     Route: 042

REACTIONS (17)
  - Obstructive airways disorder [Unknown]
  - SARS-CoV-2 test positive [Unknown]
  - Respiratory failure [Unknown]
  - Anaphylactic reaction [Recovering/Resolving]
  - COVID-19 [Unknown]
  - Drug intolerance [Unknown]
  - Dyspnoea [Not Recovered/Not Resolved]
  - Mouth haemorrhage [Unknown]
  - Pharyngeal swelling [Not Recovered/Not Resolved]
  - Pneumonia [Unknown]
  - Swollen tongue [Not Recovered/Not Resolved]
  - Upper respiratory tract infection [Unknown]
  - Urticaria [Recovering/Resolving]
  - Viral test positive [Unknown]
  - Tongue injury [Unknown]
  - Respiratory syncytial virus test positive [Unknown]
  - Human rhinovirus test positive [Unknown]

NARRATIVE: CASE EVENT DATE: 20180718
